FAERS Safety Report 20695434 (Version 1)
Quarter: 2022Q2

REPORT INFORMATION
  Report Type: Spontaneous
  Country: US (occurrence: None)
  Receive Date: 20220408
  Receipt Date: 20220408
  Transmission Date: 20220721
  Serious: Yes (Other)
  Sender: FDA-Public Use
  Company Number: None

PATIENT
  Age: 77 Year
  Sex: Male
  Weight: 56.7 kg

DRUGS (11)
  1. BELSOMRA [Suspect]
     Active Substance: SUVOREXANT
     Indication: Insomnia
     Dosage: OTHER QUANTITY : 1 TABLET(S)?FREQUENCY : AT BEDTIME?
     Route: 048
     Dates: start: 20220317, end: 20220318
  2. LISINOPRIL [Concomitant]
     Active Substance: LISINOPRIL
  3. METOPROLOL [Concomitant]
     Active Substance: METOPROLOL
  4. pro air repiclick [Concomitant]
  5. SIMVASTATIN [Concomitant]
     Active Substance: SIMVASTATIN
  6. GABAPENTIN [Concomitant]
     Active Substance: GABAPENTIN
  7. METHYLPHENIDATE [Concomitant]
     Active Substance: METHYLPHENIDATE
  8. DICLOFENAC [Concomitant]
     Active Substance: DICLOFENAC
  9. VITAMIN D NOS [Concomitant]
     Active Substance: VITAMIN D NOS
  10. MAGNESIUM [Concomitant]
     Active Substance: MAGNESIUM
  11. ZINC [Concomitant]
     Active Substance: ZINC

REACTIONS (10)
  - Amnesia [None]
  - Psychotic disorder [None]
  - Fall [None]
  - Skin laceration [None]
  - Pollakiuria [None]
  - Disturbance in social behaviour [None]
  - Screaming [None]
  - Aggression [None]
  - Thinking abnormal [None]
  - Posture abnormal [None]

NARRATIVE: CASE EVENT DATE: 20220317
